FAERS Safety Report 7948216-1 (Version None)
Quarter: 2011Q4

REPORT INFORMATION
  Report Type: 
  Country: None (occurrence: None)
  Receive Date: 20111121
  Receipt Date: 20111114
  Transmission Date: 20120403
  Serious: Yes (Hospitalization)
  Sender: FDA-Public Use
  Company Number: US-1188713

PATIENT
  Sex: Male

DRUGS (3)
  1. DUREZOL [Suspect]
     Indication: OCULAR HYPERAEMIA
     Dosage: (2 GTT QD OD OPHTHALMIC)
     Route: 047
  2. ASPIRIN [Concomitant]
  3. SIMVASTATIN [Concomitant]

REACTIONS (1)
  - CEREBROVASCULAR ACCIDENT [None]
